FAERS Safety Report 18209586 (Version 1)
Quarter: 2020Q3

REPORT INFORMATION
  Report Type: Spontaneous
  Country: JP (occurrence: JP)
  Receive Date: 20200828
  Receipt Date: 20200828
  Transmission Date: 20201103
  Serious: Yes (Other)
  Sender: FDA-Public Use
  Company Number: JP-ASTRAZENECA-2020SF08626

PATIENT
  Sex: Female

DRUGS (4)
  1. ROZEREM [Concomitant]
     Active Substance: RAMELTEON
     Route: 048
  2. SILECE [Concomitant]
     Active Substance: FLUNITRAZEPAM
     Route: 048
  3. MYSLEE [Concomitant]
     Active Substance: ZOLPIDEM TARTRATE
     Route: 065
  4. SEROQUEL [Suspect]
     Active Substance: QUETIAPINE FUMARATE
     Indication: INSOMNIA
     Dosage: AT BEDTIME
     Route: 048
     Dates: start: 20200818, end: 20200819

REACTIONS (6)
  - Insomnia [Unknown]
  - Product use in unapproved indication [Unknown]
  - Tachycardia [Recovered/Resolved]
  - Withdrawal syndrome [Unknown]
  - Seizure [Unknown]
  - Off label use [Unknown]

NARRATIVE: CASE EVENT DATE: 202008
